FAERS Safety Report 11101711 (Version 1)
Quarter: 2015Q2

REPORT INFORMATION
  Report Type: Report from Study
  Country: US (occurrence: US)
  Receive Date: 20150508
  Receipt Date: 20150508
  Transmission Date: 20150821
  Serious: Yes (Other)
  Sender: FDA-Public Use
  Company Number: PHEH2015US004332

PATIENT
  Age: 72 Year
  Weight: 84.82 kg

DRUGS (2)
  1. AFINITOR [Suspect]
     Active Substance: EVEROLIMUS
     Indication: COLON CANCER
     Dosage: 10 MG, QD
     Route: 048
     Dates: start: 20141029, end: 20150113
  2. AFINITOR [Suspect]
     Active Substance: EVEROLIMUS
     Indication: CARCINOID TUMOUR

REACTIONS (15)
  - Ascites [Unknown]
  - Localised oedema [Unknown]
  - Local swelling [Unknown]
  - Abdominal hernia [Unknown]
  - Metastases to bone [Unknown]
  - Lymphadenopathy [Unknown]
  - Abdominal lymphadenopathy [Unknown]
  - Rash [Unknown]
  - Emphysema [Unknown]
  - Bone pain [Unknown]
  - Erythema [Unknown]
  - Rash pruritic [Unknown]
  - Rash macular [Unknown]
  - Metastases to liver [Unknown]
  - Retroperitoneal lymphadenopathy [Unknown]

NARRATIVE: CASE EVENT DATE: 20141225
